FAERS Safety Report 5753033-7 (Version None)
Quarter: 2008Q2

REPORT INFORMATION
  Report Type: 
  Country: None (occurrence: None)
  Receive Date: 20080527
  Receipt Date: 20080515
  Transmission Date: 20081010
  Serious: Yes (Other)
  Sender: FDA-Public Use
  Company Number: GXKR2008GB04485

PATIENT
  Age: 58 Year
  Sex: Female

DRUGS (8)
  1. TRIMETHOPRIM [Suspect]
     Indication: URINARY TRACT INFECTION
     Dosage: 200 MG, ORAL
     Route: 048
     Dates: start: 20080425, end: 20080429
  2. ADCAL-D3 (CALCIUM CARBONATE, COLECALCIFEROL) [Concomitant]
  3. EZETROL (EZETIMIBE) [Concomitant]
  4. FELODIPINE [Concomitant]
  5. HYDROXYZINE [Concomitant]
  6. LANSOPRAZOLE [Concomitant]
  7. PERINDOPRIL ERBUMINE [Concomitant]
  8. SIMVASTATIN [Concomitant]

REACTIONS (4)
  - LIP SWELLING [None]
  - MOUTH ULCERATION [None]
  - STEVENS-JOHNSON SYNDROME [None]
  - STOMATITIS [None]
